FAERS Safety Report 9153614 (Version 1)
Quarter: 2013Q1

REPORT INFORMATION
  Report Type: Spontaneous
  Country: US (occurrence: None)
  Receive Date: 20130306
  Receipt Date: 20130306
  Transmission Date: 20140127
  Serious: Yes (Other)
  Sender: FDA-Public Use
  Company Number: None

PATIENT
  Age: 45 Year
  Sex: Female

DRUGS (1)
  1. XOLAIR 150 MG GENENTECH [Suspect]
     Indication: ASTHMA
     Dosage: 150MG Q4WEEKS SQ
     Route: 058
     Dates: start: 20110401

REACTIONS (1)
  - Urticaria [None]
